FAERS Safety Report 8409868-5 (Version None)
Quarter: 2012Q2

REPORT INFORMATION
  Report Type: 
  Country: None (occurrence: None)
  Receive Date: 20120605
  Receipt Date: 20120529
  Transmission Date: 20120825
  Serious: No
  Sender: FDA-Public Use
  Company Number: US-PFIZER INC-2012129061

PATIENT
  Sex: Female
  Weight: 54.422 kg

DRUGS (2)
  1. POTASSIUM PENICILLIN G [Suspect]
     Dosage: UNK
  2. CALCIUM [Concomitant]
     Dosage: UNK, DAILY

REACTIONS (1)
  - HYPERSENSITIVITY [None]
